FAERS Safety Report 7721525-7 (Version None)
Quarter: 2011Q3

REPORT INFORMATION
  Report Type: 
  Country: None (occurrence: None)
  Receive Date: 20110831
  Receipt Date: 20110823
  Transmission Date: 20111222
  Serious: Yes (Other)
  Sender: FDA-Public Use
  Company Number: US-PFIZER INC-2011167405

PATIENT
  Sex: Female

DRUGS (3)
  1. TRIAMCINOLONE ACETONIDE W/NYSTATIN [Concomitant]
     Dosage: UNK
     Dates: start: 20110807
  2. DIFLUCAN [Suspect]
     Indication: FUNGAL INFECTION
     Dosage: 150 MG, UNK
     Dates: start: 20110708
  3. LEVONORGESTREL + ETHINYL ESTRADIOL [Concomitant]
     Dosage: UNK
     Dates: start: 20100817

REACTIONS (5)
  - OROPHARYNGEAL BLISTERING [None]
  - BLISTER [None]
  - HYPERSENSITIVITY [None]
  - URTICARIA [None]
  - FATIGUE [None]
